FAERS Safety Report 7973197-4 (Version None)
Quarter: 2011Q4

REPORT INFORMATION
  Report Type: 
  Country: None (occurrence: None)
  Receive Date: 20111213
  Receipt Date: 20111130
  Transmission Date: 20120403
  Serious: Yes (Hospitalization)
  Sender: FDA-Public Use
  Company Number: PHEH2011US07948

PATIENT
  Sex: Male
  Weight: 72.562 kg

DRUGS (3)
  1. EXJADE [Suspect]
     Dosage: 1625 MG, QD
     Dates: start: 20111025
  2. EXJADE [Suspect]
     Dosage: 1625 MG, QD
     Dates: start: 20111125
  3. COLCHICINE [Concomitant]

REACTIONS (9)
  - ABDOMINAL DISCOMFORT [None]
  - DIARRHOEA [None]
  - ARTHRALGIA [None]
  - PYREXIA [None]
  - PAIN IN EXTREMITY [None]
  - VISION BLURRED [None]
  - OEDEMA PERIPHERAL [None]
  - RENAL IMPAIRMENT [None]
  - CHILLS [None]
